FAERS Safety Report 20340823 (Version 1)
Quarter: 2022Q1

REPORT INFORMATION
  Report Type: Spontaneous
  Country: JP (occurrence: JP)
  Receive Date: 20220117
  Receipt Date: 20220117
  Transmission Date: 20220423
  Serious: Yes (Other)
  Sender: FDA-Public Use
  Company Number: JP-TAKEDA-2021TJP127412

PATIENT
  Age: 73 Year
  Sex: Female

DRUGS (2)
  1. ZEJULA [Suspect]
     Active Substance: NIRAPARIB
     Indication: Ovarian cancer stage III
     Dosage: UNK, QD
     Route: 048
     Dates: start: 20210701
  2. ZEJULA [Suspect]
     Active Substance: NIRAPARIB
     Dosage: UNK UNK, QD
     Route: 048

REACTIONS (5)
  - Ovarian cancer [Unknown]
  - Disease progression [Unknown]
  - Nausea [Unknown]
  - Neutrophil count decreased [Recovered/Resolved]
  - Haemoglobin decreased [Recovered/Resolved]

NARRATIVE: CASE EVENT DATE: 20210707
